FAERS Safety Report 20474527 (Version 1)
Quarter: 2022Q1

REPORT INFORMATION
  Report Type: Report from Study
  Country: US (occurrence: US)
  Receive Date: 20220215
  Receipt Date: 20220215
  Transmission Date: 20220424
  Serious: Yes (Other)
  Sender: FDA-Public Use
  Company Number: US-TEVA-2018-US-843881

PATIENT
  Age: 81 Year
  Sex: Female

DRUGS (1)
  1. AUSTEDO [Suspect]
     Active Substance: DEUTETRABENAZINE
     Indication: Tardive dyskinesia
     Dosage: 12 MILLIGRAM DAILY; NEW, TITRATING PATIENT
     Route: 065
     Dates: start: 20171213

REACTIONS (4)
  - Hallucination [Unknown]
  - Feeling abnormal [Unknown]
  - Amnesia [Unknown]
  - Psychotic behaviour [Unknown]

NARRATIVE: CASE EVENT DATE: 20171201
